FAERS Safety Report 5994691-1 (Version None)
Quarter: 2008Q4

REPORT INFORMATION
  Report Type: 
  Country: None (occurrence: None)
  Receive Date: 20081212
  Receipt Date: 20080606
  Transmission Date: 20090506
  Serious: No
  Sender: FDA-Public Use
  Company Number: US-AMGEN-KDL285516

PATIENT
  Sex: Male

DRUGS (2)
  1. ENBREL [Suspect]
     Indication: BEHCET'S SYNDROME
     Route: 058
     Dates: start: 20080408
  2. ENBREL [Suspect]
     Indication: DRUG USE FOR UNKNOWN INDICATION

REACTIONS (1)
  - INJECTION SITE IRRITATION [None]
